FAERS Safety Report 20605491 (Version 1)
Quarter: 2022Q1

REPORT INFORMATION
  Report Type: Spontaneous
  Country: None (occurrence: US)
  Receive Date: 20220317
  Receipt Date: 20220317
  Transmission Date: 20220423
  Serious: No
  Sender: FDA-Public Use
  Company Number: US-UBI Pharma Inc.-2126864

PATIENT
  Age: 29 Year
  Sex: Female
  Weight: 88.636 kg

DRUGS (1)
  1. DESMOPRESSIN ACETATE [Suspect]
     Active Substance: DESMOPRESSIN ACETATE
     Indication: Diabetes insipidus
     Route: 058
     Dates: start: 2012

REACTIONS (3)
  - Pollakiuria [Unknown]
  - Blood sodium abnormal [Unknown]
  - Amnesia [Unknown]
